FAERS Safety Report 7409355-7 (Version None)
Quarter: 2011Q2

REPORT INFORMATION
  Report Type: 
  Country: None (occurrence: None)
  Receive Date: 20110412
  Receipt Date: 20101008
  Transmission Date: 20111010
  Serious: Yes (Hospitalization, Other)
  Sender: FDA-Public Use
  Company Number: US-BAYER-201015395NA

PATIENT
  Age: 28 Year
  Sex: Female
  Weight: 59 kg

DRUGS (13)
  1. BENADRYL [Concomitant]
  2. ZOLOFT [Concomitant]
     Route: 048
  3. DARVOCET [Concomitant]
  4. ALPRAZOLAM [Concomitant]
  5. SOLU-MEDROL [Concomitant]
  6. YAZ [Suspect]
     Indication: PRODUCT USED FOR UNKNOWN INDICATION
  7. OCELLA [Suspect]
     Indication: PRODUCT USED FOR UNKNOWN INDICATION
  8. SPIRONOLACTONE [Concomitant]
     Indication: HIRSUTISM
     Dosage: UNK
  9. ALLEGRA [Concomitant]
  10. DOXYCYCLINE [Concomitant]
  11. MINOCYCLINE [Concomitant]
  12. YASMIN [Suspect]
     Indication: PRODUCT USED FOR UNKNOWN INDICATION
     Dates: start: 20040101, end: 20050501
  13. ASPIRIN [Concomitant]
     Route: 065

REACTIONS (16)
  - PARVOVIRUS INFECTION [None]
  - THROMBOSIS [None]
  - DEPRESSION [None]
  - DYSPNOEA [None]
  - URTICARIA [None]
  - RASH [None]
  - MYALGIA [None]
  - NAUSEA [None]
  - SYNCOPE [None]
  - GASTRITIS [None]
  - PULMONARY EMBOLISM [None]
  - ARTHRALGIA [None]
  - PALPITATIONS [None]
  - OROPHARYNGEAL PAIN [None]
  - RASH GENERALISED [None]
  - ANXIETY [None]
